FAERS Safety Report 8899911 (Version 1)
Quarter: 2012Q4

REPORT INFORMATION
  Report Type: 
  Country: US (occurrence: US)
  Receive Date: 20121108
  Receipt Date: 20121108
  Transmission Date: 20130627
  Serious: No
  Sender: FDA-Public Use
  Company Number: US-AMGEN-USASP2012036769

PATIENT
  Sex: Male
  Weight: 81.64 kg

DRUGS (7)
  1. ENBREL [Suspect]
     Indication: PRODUCT USED FOR UNKNOWN INDICATION
     Dosage: 50 mg, qmo
     Route: 058
  2. LISINOPRIL [Concomitant]
     Dosage: 10 mg, UNK
  3. HYDROCHLOROTHIAZIDE [Concomitant]
     Dosage: 12.5 mg, UNK
  4. FISH OIL [Concomitant]
  5. METOPROLOL [Concomitant]
     Dosage: 100 mg, UNK
  6. PRILOSEC                           /00661201/ [Concomitant]
     Dosage: 10 mg, UNK
  7. MULTIVITAMIN                       /00097801/ [Concomitant]

REACTIONS (1)
  - Drug ineffective [Unknown]
